FAERS Safety Report 10556934 (Version 2)
Quarter: 2015Q2

REPORT INFORMATION
  Report Type: Spontaneous
  Country: RU (occurrence: RU)
  Receive Date: 20141031
  Receipt Date: 20150626
  Transmission Date: 20150821
  Serious: Yes (Hospitalization, Other)
  Sender: FDA-Public Use
  Company Number: RU-UCBSA-2014016620

PATIENT
  Age: 16 Year
  Sex: Male

DRUGS (1)
  1. KEPPRA [Suspect]
     Active Substance: LEVETIRACETAM
     Indication: PARTIAL SEIZURES
     Dosage: 3 G, 2X/DAY (BID)
     Route: 048

REACTIONS (5)
  - Mental retardation [Recovering/Resolving]
  - Decreased appetite [Unknown]
  - Headache [Recovering/Resolving]
  - Depressed mood [Unknown]
  - Drug ineffective [Unknown]

NARRATIVE: CASE EVENT DATE: 201308
